FAERS Safety Report 9297565 (Version 1)
Quarter: 2013Q3

REPORT INFORMATION
  Report Type: Spontaneous
  Country: US (occurrence: None)
  Receive Date: 20130517
  Receipt Date: 20130517
  Transmission Date: 20140515
  Serious: Yes (Hospitalization)
  Sender: FDA-Public Use
  Company Number: None

PATIENT
  Age: 39 Year
  Sex: Male
  Weight: 72.8 kg

DRUGS (11)
  1. CARBOPLATIN [Suspect]
     Indication: OESOPHAGEAL CARCINOMA
     Dosage: AUC 5/175 MG/M2 Q21DAYS
     Dates: start: 20130411
  2. RIDAFOROLIMUS [Suspect]
     Indication: OESOPHAGEAL CARCINOMA
     Dosage: 30 MG PO DAYS 1-5 AND 8-12
     Route: 048
     Dates: start: 20130412
  3. XANAX [Concomitant]
  4. ZOFRAN PRN [Concomitant]
  5. COMPAZIN [Concomitant]
  6. DECADRON [Concomitant]
  7. ZANTAC [Concomitant]
  8. BENADRYL [Concomitant]
  9. OMEPRAZOLE [Concomitant]
  10. DOXYCYCLINE [Concomitant]
  11. LEVAQUIN [Concomitant]

REACTIONS (6)
  - Erythema [None]
  - Cellulitis [None]
  - Folliculitis [None]
  - Night sweats [None]
  - Gastrooesophageal reflux disease [None]
  - Nausea [None]
